FAERS Safety Report 6273861-1 (Version None)
Quarter: 2009Q3

REPORT INFORMATION
  Report Type: 
  Country: None (occurrence: None)
  Receive Date: 20090720
  Receipt Date: 20090713
  Transmission Date: 20100115
  Serious: Yes (Hospitalization)
  Sender: FDA-Public Use
  Company Number: FR-ABBOTT-09P-056-0584699-00

PATIENT
  Age: 65 Year
  Sex: Female

DRUGS (13)
  1. DEPAKOTE [Suspect]
     Indication: DRUG USE FOR UNKNOWN INDICATION
     Dosage: 1 GM
     Route: 048
     Dates: start: 20081101
  2. DEPAKOTE [Interacting]
     Dosage: 750 MG
     Route: 048
  3. DEPAKOTE [Interacting]
     Dosage: 500 MG
     Route: 048
     Dates: end: 20090224
  4. LAMICTAL [Interacting]
     Indication: TREMOR
     Dosage: 50 MG
     Route: 048
     Dates: start: 20090217, end: 20090224
  5. LAMICTAL [Interacting]
     Dosage: 100 MG
     Route: 048
     Dates: start: 20090224, end: 20090228
  6. RISPERDAL [Concomitant]
     Indication: DRUG USE FOR UNKNOWN INDICATION
     Route: 048
     Dates: start: 20081101
  7. PARKINANE [Concomitant]
     Indication: DRUG USE FOR UNKNOWN INDICATION
     Route: 048
     Dates: start: 20081101
  8. DEROXAT [Concomitant]
     Indication: DRUG USE FOR UNKNOWN INDICATION
     Route: 048
     Dates: start: 20081101
  9. PARACETAMOL [Concomitant]
     Indication: DRUG USE FOR UNKNOWN INDICATION
     Route: 065
     Dates: start: 20081101
  10. NICORETTE [Concomitant]
     Indication: DRUG USE FOR UNKNOWN INDICATION
     Route: 065
     Dates: start: 20081101
  11. SYMBICORT [Concomitant]
     Indication: DRUG USE FOR UNKNOWN INDICATION
     Route: 055
     Dates: start: 20081101
  12. LOCERYL [Concomitant]
     Indication: DRUG USE FOR UNKNOWN INDICATION
     Route: 050
     Dates: start: 20081101
  13. UVEDOSE [Concomitant]
     Indication: DRUG USE FOR UNKNOWN INDICATION
     Route: 048
     Dates: start: 20090228

REACTIONS (5)
  - DRUG INTERACTION [None]
  - FACE OEDEMA [None]
  - PRURITUS [None]
  - PURPURA [None]
  - RASH ERYTHEMATOUS [None]
